FAERS Safety Report 9660501 (Version 1)
Quarter: 2013Q4

REPORT INFORMATION
  Report Type: Spontaneous
  Country: GB (occurrence: GB)
  Receive Date: 20131031
  Receipt Date: 20131031
  Transmission Date: 20140711
  Serious: Yes (Hospitalization)
  Sender: FDA-Public Use
  Company Number: PHHY2013GB119364

PATIENT
  Age: 94 Year
  Sex: Male

DRUGS (12)
  1. ALENDRONIC ACID [Suspect]
     Dosage: 70 MG, QW
     Route: 048
  2. CALCIUM CARBONATE [Concomitant]
  3. RAMIPRIL [Concomitant]
  4. BUMETANIDE [Concomitant]
  5. OMEPRAZOLE [Concomitant]
     Dosage: 10 MG, DOSE INCREASED TO 20MG ON ADMISSION
  6. LACTULOSE [Concomitant]
  7. CO-CODAMOL [Concomitant]
  8. GTN [Concomitant]
  9. ATENOLOL [Concomitant]
  10. SIMVASTATIN [Concomitant]
  11. FERROUS FUMARATE [Concomitant]
  12. WARFARIN [Suspect]
     Dosage: 3 MG, UNK
     Route: 048
     Dates: end: 20131007

REACTIONS (5)
  - Hiatus hernia [Unknown]
  - Varices oesophageal [Unknown]
  - Haematemesis [Unknown]
  - Gastrointestinal haemorrhage [Recovering/Resolving]
  - Melaena [Unknown]
